FAERS Safety Report 6509273-2 (Version None)
Quarter: 2009Q4

REPORT INFORMATION
  Report Type: 
  Country: None (occurrence: None)
  Receive Date: 20091222
  Receipt Date: 20091208
  Transmission Date: 20100525
  Serious: Yes (Hospitalization)
  Sender: FDA-Public Use
  Company Number: JP-BIOGENIDEC-2008BI012199

PATIENT
  Age: 54 Year
  Sex: Female

DRUGS (3)
  1. AVONEX [Suspect]
     Indication: MULTIPLE SCLEROSIS
     Route: 030
     Dates: start: 20070927, end: 20091101
  2. LOXONIN [Concomitant]
     Dates: start: 20070927
  3. OMEPRAL [Concomitant]
     Dates: start: 20070927

REACTIONS (3)
  - HAEMOCHROMATOSIS [None]
  - HEPATIC FUNCTION ABNORMAL [None]
  - SCLEREMA [None]
